FAERS Safety Report 8866469 (Version 1)
Quarter: 2012Q4

REPORT INFORMATION
  Report Type: 
  Country: US (occurrence: US)
  Receive Date: 20121025
  Receipt Date: 20121025
  Transmission Date: 20130627
  Serious: Yes (Other)
  Sender: FDA-Public Use
  Company Number: US-PFIZER INC-2012262404

PATIENT
  Age: 49 Year
  Sex: Female
  Weight: 88.89 kg

DRUGS (6)
  1. CYTOMEL [Suspect]
     Indication: AUTOIMMUNE THYROIDITIS
     Dosage: 37.5 ug(one and a half tablet of 25ug), 1x/day
     Route: 048
     Dates: end: 201210
  2. CYTOMEL [Suspect]
     Dosage: dose decreased, daily
     Route: 048
     Dates: start: 201210, end: 201210
  3. SYNTHROID [Concomitant]
     Dosage: UNK
  4. JOLESSA [Concomitant]
     Dosage: UNK
  5. ATENOLOL [Concomitant]
     Dosage: UNK
  6. HYDRALAZINE [Concomitant]
     Dosage: UNK

REACTIONS (2)
  - Product quality issue [Unknown]
  - Hyperthyroidism [Unknown]
